FAERS Safety Report 6686471-9 (Version None)
Quarter: 2010Q2

REPORT INFORMATION
  Report Type: 
  Country: None (occurrence: None)
  Receive Date: 20100419
  Receipt Date: 20100412
  Transmission Date: 20101027
  Serious: Yes (Other)
  Sender: FDA-Public Use
  Company Number: US-RB-006822-10

PATIENT
  Age: 42 Year
  Sex: Female

DRUGS (2)
  1. SUBUTEX [Suspect]
     Indication: DRUG USE FOR UNKNOWN INDICATION
     Dosage: UNKNOWN DOSING DETAILS
     Route: 065
     Dates: start: 20100101
  2. SUBOXONE [Suspect]
     Indication: DRUG USE FOR UNKNOWN INDICATION
     Dosage: UNKNOWN DOSING DETAILS
     Route: 065

REACTIONS (11)
  - ABDOMINAL MASS [None]
  - BLADDER MASS [None]
  - COLONIC OBSTRUCTION [None]
  - COLONIC POLYP [None]
  - CONSTIPATION [None]
  - DIVERTICULITIS [None]
  - DYSURIA [None]
  - HAEMATOCHEZIA [None]
  - HEPATIC MASS [None]
  - STRESS [None]
  - VOMITING [None]
